FAERS Safety Report 8891042 (Version 1)
Quarter: 2012Q4

REPORT INFORMATION
  Report Type: 
  Country: US (occurrence: US)
  Receive Date: 20121107
  Receipt Date: 20121107
  Transmission Date: 20130627
  Serious: Yes (Other)
  Sender: FDA-Public Use
  Company Number: US-BAYER-2012-115514

PATIENT
  Age: 82 Year
  Sex: Female
  Weight: 65.76 kg

DRUGS (1)
  1. ASPIRIN ^BAYER^ [Suspect]
     Indication: MYOCARDIAL INFARCT PROPHYLAXIS
     Dosage: 2 DF, QD
     Route: 048
     Dates: start: 201207, end: 201207

REACTIONS (2)
  - Blood urine present [Recovered/Resolved]
  - Faeces discoloured [Recovered/Resolved]
